FAERS Safety Report 7358896-X (Version None)
Quarter: 2011Q1

REPORT INFORMATION
  Report Type: 
  Country: None (occurrence: None)
  Receive Date: 20110317
  Receipt Date: 20110311
  Transmission Date: 20110831
  Serious: Yes (Hospitalization)
  Sender: FDA-Public Use
  Company Number: DE-BRISTOL-MYERS SQUIBB COMPANY-15451875

PATIENT
  Age: 69 Year
  Sex: Male
  Weight: 78 kg

DRUGS (6)
  1. GEMCITABINE HCL [Suspect]
     Indication: NON-SMALL CELL LUNG CANCER
     Dosage: LAST DOSE ON 30NOV10 AND RESUMED ON 09DEC2010, ON DAY 8.
     Route: 042
     Dates: start: 20101130
  2. OMNIC [Concomitant]
     Dates: start: 20101129
  3. TRANSTEC [Concomitant]
     Dosage: TRANSTEC 35
     Dates: start: 20101127
  4. PANTOPRAZOLE [Concomitant]
     Dates: start: 20101110
  5. LAXOBERAL [Concomitant]
     Dates: start: 20101130
  6. CISPLATIN [Suspect]
     Indication: NON-SMALL CELL LUNG CANCER
     Dosage: LAST DOSE ON 30NOV10.
     Route: 042
     Dates: start: 20101130

REACTIONS (1)
  - CONSTIPATION [None]
